FAERS Safety Report 7022614-5 (Version None)
Quarter: 2010Q3

REPORT INFORMATION
  Report Type: 
  Country: None (occurrence: None)
  Receive Date: 20100930
  Receipt Date: 20100920
  Transmission Date: 20110219
  Serious: Yes (Hospitalization)
  Sender: FDA-Public Use
  Company Number: IT-PFIZER INC-2010112536

PATIENT
  Age: 52 Year
  Sex: Male

DRUGS (7)
  1. VFEND [Suspect]
     Indication: PNEUMONIA FUNGAL
     Dosage: 1200 MG, DAILY
     Route: 042
     Dates: start: 20100817, end: 20100818
  2. ACICLOVIR [Concomitant]
  3. CYCLOSPORINE [Concomitant]
  4. ZYVOX [Concomitant]
  5. SELEPARINA [Concomitant]
  6. CORDARONE X ^SANOFI^ [Concomitant]
  7. EUTIROX [Concomitant]

REACTIONS (2)
  - HYPOTENSION [None]
  - MUSCULAR WEAKNESS [None]
